FAERS Safety Report 21605891 (Version 1)
Quarter: 2022Q4

REPORT INFORMATION
  Report Type: Spontaneous
  Country: CN (occurrence: CN)
  Receive Date: 20221116
  Receipt Date: 20221116
  Transmission Date: 20230113
  Serious: Yes (Life-Threatening, Other)
  Sender: FDA-Public Use
  Company Number: None

PATIENT
  Age: 67 Year
  Sex: Male
  Weight: 67 kg

DRUGS (12)
  1. CYCLOPHOSPHAMIDE [Suspect]
     Active Substance: CYCLOPHOSPHAMIDE
     Indication: Diffuse large B-cell lymphoma
     Dosage: 1.3 G ,ONCE DAILY, DILUTED WITH 500 ML OF SODIUM CHLORIDE
     Route: 041
     Dates: start: 20221019, end: 20221019
  2. SODIUM CHLORIDE [Suspect]
     Active Substance: SODIUM CHLORIDE
     Indication: Medication dilution
     Dosage: 500 ML, ONCE DAILY, USED TO DILUTE 1.3 G CYCLOPHOSPHAMIDE
     Route: 041
     Dates: start: 20221019, end: 20221019
  3. SODIUM CHLORIDE [Suspect]
     Active Substance: SODIUM CHLORIDE
     Dosage: 250 ML, ONCE DAILY, USED TO DILUTE 15 MG DEXAMETHASONE SODIUM PHOSPHATE
     Route: 041
     Dates: start: 20221019, end: 20221023
  4. ETOPOSIDE [Suspect]
     Active Substance: ETOPOSIDE
     Indication: Diffuse large B-cell lymphoma
     Dosage: 0.1 G, ONCE DAILY, DILUTED WITH 500 ML OF SODIUM CHLORIDE
     Route: 041
     Dates: start: 20221019, end: 20221021
  5. RITUXIMAB [Suspect]
     Active Substance: RITUXIMAB
     Indication: Diffuse large B-cell lymphoma
     Dosage: 0.7 G, ONCE DAILY, DILUTED WITH 40 ML OF  SODIUM CHLORIDE
     Route: 041
     Dates: start: 20221018, end: 20221018
  6. EPIRUBICIN HYDROCHLORIDE [Suspect]
     Active Substance: EPIRUBICIN HYDROCHLORIDE
     Indication: Diffuse large B-cell lymphoma
     Dosage: 100 MG, ONCE DAILY, DILUTED WITH 250 ML OF SODIUM CHLORIDE
     Route: 042
     Dates: start: 20221019, end: 20221019
  7. VINDESINE SULFATE [Suspect]
     Active Substance: VINDESINE SULFATE
     Indication: Diffuse large B-cell lymphoma
     Dosage: 4 MG, ONCE DAILY, DILUTED WITH 60 ML OF STERILE WATER
     Route: 042
     Dates: start: 20221019, end: 20221019
  8. DEXAMETHASONE SODIUM PHOSPHATE [Concomitant]
     Active Substance: DEXAMETHASONE SODIUM PHOSPHATE
     Indication: Diffuse large B-cell lymphoma
     Dosage: 15 MG, ONCE DAILY, DILUTED WITH 250 ML OF SODIUM CHLORIDE
     Route: 041
     Dates: start: 20221019, end: 20221023
  9. SODIUM CHLORIDE [Concomitant]
     Active Substance: SODIUM CHLORIDE
     Indication: Diffuse large B-cell lymphoma
     Dosage: 40 ML, ONCE DAILY, USED TO DILUTE 0.7 G RITUXIMAB
     Route: 042
     Dates: start: 20221019, end: 20221019
  10. SODIUM CHLORIDE [Concomitant]
     Active Substance: SODIUM CHLORIDE
     Dosage: 250 ML, ONCE DAILY, USED TO DILUTE 100 MG EPIRUBICIN HYDROCHLORIDE
     Route: 041
     Dates: start: 20221018, end: 20221023
  11. SODIUM CHLORIDE [Concomitant]
     Active Substance: SODIUM CHLORIDE
     Dosage: 500 ML, ONCE DAILY, USED TO DILUTE 0.1 G ETOPOSIDE
     Route: 041
     Dates: start: 20221018, end: 20221021
  12. STERILE WATER [Concomitant]
     Active Substance: WATER
     Indication: Diffuse large B-cell lymphoma
     Dosage: 60 ML, ONCE DAILY, USED TO DILUTE 4 MG VINDESINE SULFATE
     Route: 042
     Dates: start: 20221019, end: 20221019

REACTIONS (1)
  - Myelosuppression [Recovering/Resolving]

NARRATIVE: CASE EVENT DATE: 20221027
